FAERS Safety Report 17098455 (Version 1)
Quarter: 2019Q4

REPORT INFORMATION
  Report Type: Report from Study
  Country: CA (occurrence: CA)
  Receive Date: 20191202
  Receipt Date: 20191202
  Transmission Date: 20200122
  Serious: Yes (Other)
  Sender: FDA-Public Use
  Company Number: CA-BRISTOL-MYERS SQUIBB COMPANY-BMS-2019-111304

PATIENT
  Age: 64 Year
  Sex: Male

DRUGS (1)
  1. ABATACEPT [Suspect]
     Active Substance: ABATACEPT
     Indication: RHEUMATOID ARTHRITIS
     Dosage: 125 MILLIGRAM, QWK
     Route: 058
     Dates: start: 20191025

REACTIONS (5)
  - Gastric disorder [Unknown]
  - Fatigue [Unknown]
  - Frequent bowel movements [Unknown]
  - Flatulence [Unknown]
  - Hypotension [Unknown]

NARRATIVE: CASE EVENT DATE: 201911
